FAERS Safety Report 6527208-3 (Version None)
Quarter: 2010Q1

REPORT INFORMATION
  Report Type: 
  Country: None (occurrence: None)
  Receive Date: 20100105
  Receipt Date: 20091228
  Transmission Date: 20100710
  Serious: Yes (Other)
  Sender: FDA-Public Use
  Company Number: FR-BRISTOL-MYERS SQUIBB COMPANY-14885164

PATIENT
  Age: 37 Year
  Sex: Female

DRUGS (4)
  1. LYSODREN [Suspect]
     Indication: ADRENOCORTICAL CARCINOMA
     Dosage: 1DF=1TAB,16-20SEP09,21-25SEP,26-30SEP,01-05OCT09,06-11OCT,12-18OCT,20-25OCT,25-26OCT,27OCT-02NOV09.
     Dates: start: 20090916, end: 20091102
  2. HYDROCORTISONE [Concomitant]
     Indication: HORMONE REPLACEMENT THERAPY
     Dates: start: 20090916
  3. CELESTENE [Concomitant]
  4. NUX VOMICA [Concomitant]
     Indication: ABDOMINAL PAIN

REACTIONS (7)
  - ABDOMINAL PAIN [None]
  - BLOOD ALKALINE PHOSPHATASE INCREASED [None]
  - CYTOLYTIC HEPATITIS [None]
  - GAMMA-GLUTAMYLTRANSFERASE INCREASED [None]
  - NAUSEA [None]
  - RASH [None]
  - VOMITING [None]
